FAERS Safety Report 8839289 (Version 1)
Quarter: 2012Q4

REPORT INFORMATION
  Report Type: 
  Country: US (occurrence: US)
  Receive Date: 20121015
  Receipt Date: 20121015
  Transmission Date: 20130627
  Serious: No
  Sender: FDA-Public Use
  Company Number: US-GLAXOSMITHKLINE-A0952343A

PATIENT
  Age: 56 Year
  Sex: Male

DRUGS (3)
  1. DUAC [Suspect]
     Indication: ACNE
     Dosage: 1APP Per day
     Route: 061
     Dates: start: 20111030, end: 20111103
  2. LIPITOR [Concomitant]
  3. FLOMAX [Concomitant]

REACTIONS (6)
  - Rash pruritic [Recovered/Resolved]
  - Rash [Unknown]
  - Burning sensation [Unknown]
  - Application site erythema [Unknown]
  - Application site papules [Unknown]
  - Application site irritation [Unknown]
